FAERS Safety Report 16867534 (Version 1)
Quarter: 2019Q3

REPORT INFORMATION
  Report Type: Spontaneous
  Country: ES (occurrence: ES)
  Receive Date: 20190930
  Receipt Date: 20190930
  Transmission Date: 20191005
  Serious: Yes (Hospitalization)
  Sender: FDA-Public Use
  Company Number: ES-MYLANLABS-2019M1090997

PATIENT
  Age: 15 Year
  Sex: Female

DRUGS (1)
  1. METFORMIN [Suspect]
     Active Substance: METFORMIN HYDROCHLORIDE
     Indication: PRODUCT USED FOR UNKNOWN INDICATION
     Dosage: 42.5 GRAM
     Route: 048

REACTIONS (6)
  - Renal failure [Recovering/Resolving]
  - Suicide attempt [Recovering/Resolving]
  - Toxicity to various agents [Recovering/Resolving]
  - Lactic acidosis [Recovering/Resolving]
  - Hypoglycaemia [Recovering/Resolving]
  - Intentional overdose [Recovering/Resolving]
